FAERS Safety Report 10686225 (Version 1)
Quarter: 2014Q4

REPORT INFORMATION
  Report Type: Spontaneous
  Country: US (occurrence: US)
  Receive Date: 20141231
  Receipt Date: 20141231
  Transmission Date: 20150529
  Serious: Yes (Other)
  Sender: FDA-Public Use
  Company Number: US-ASTRAZENECA-2014SE99000

PATIENT
  Age: 758 Month
  Sex: Female
  Weight: 83.9 kg

DRUGS (7)
  1. CRESTOR [Suspect]
     Active Substance: ROSUVASTATIN CALCIUM
     Indication: BLOOD CHOLESTEROL ABNORMAL
     Route: 048
     Dates: start: 20141206, end: 20141210
  2. CRESTOR [Suspect]
     Active Substance: ROSUVASTATIN CALCIUM
     Indication: BLOOD CHOLESTEROL ABNORMAL
     Route: 048
     Dates: start: 20141021, end: 20141119
  3. BABY ASPIRIN [Concomitant]
     Active Substance: ASPIRIN
     Indication: PROPHYLAXIS
     Route: 048
     Dates: start: 2012
  4. VITAMIN C [Concomitant]
     Active Substance: ASCORBIC ACID
     Indication: SUPPLEMENTATION THERAPY
     Dosage: 500 TO 1000 MG DAILY
     Route: 048
  5. VITAMIN D [Concomitant]
     Active Substance: CHOLECALCIFEROL
     Indication: SUPPLEMENTATION THERAPY
     Dosage: 5000 DAILY
     Route: 048
  6. DEXILANT [Concomitant]
     Active Substance: DEXLANSOPRAZOLE
     Indication: SUPPLEMENTATION THERAPY
     Route: 048
     Dates: start: 2014
  7. CALCIUM WITH MAGNESIUM [Concomitant]
     Indication: SUPPLEMENTATION THERAPY
     Dosage: DAILY
     Route: 048

REACTIONS (10)
  - Depressed mood [Unknown]
  - Fall [Recovered/Resolved]
  - Feeling abnormal [Unknown]
  - Intentional product misuse [Unknown]
  - Tremor [Recovered/Resolved]
  - Herpes zoster [Recovered/Resolved]
  - Vertigo [Recovered/Resolved]
  - Feeling abnormal [Not Recovered/Not Resolved]
  - Balance disorder [Unknown]
  - Dizziness [Recovered/Resolved]

NARRATIVE: CASE EVENT DATE: 201411
